FAERS Safety Report 25567844 (Version 1)
Quarter: 2025Q3

REPORT INFORMATION
  Report Type: Spontaneous
  Country: US (occurrence: US)
  Receive Date: 20250716
  Receipt Date: 20250716
  Transmission Date: 20251021
  Serious: Yes (Other)
  Sender: STEMLINE THERAPEUTICS
  Company Number: US-STEMLINE THERAPEUTICS, INC-2025-STML-US002394

PATIENT

DRUGS (4)
  1. ORSERDU [Suspect]
     Active Substance: ELACESTRANT
     Indication: Neoplasm malignant
     Dosage: 345 MG, DAILY
     Route: 048
     Dates: start: 20250606
  2. ORSERDU [Suspect]
     Active Substance: ELACESTRANT
     Dosage: 258 MG, DAILY (86 MG 3 TABLETS)
     Route: 048
  3. IBRANCE [Suspect]
     Active Substance: PALBOCICLIB
     Indication: Neoplasm malignant
     Dosage: DAILY FOR 3 WEEKS, THEN 1 WEEK OFF)
     Route: 065
     Dates: start: 20250315
  4. IBRANCE [Suspect]
     Active Substance: PALBOCICLIB
     Dosage: DAILY FOR 1 WEEK ON THEN 1 WEEK OFF
     Route: 065
     Dates: start: 20250315

REACTIONS (9)
  - Atrial fibrillation [Recovering/Resolving]
  - Flatulence [Recovering/Resolving]
  - Night sweats [Recovering/Resolving]
  - Dehydration [Recovering/Resolving]
  - Hot flush [Recovering/Resolving]
  - Fatigue [Recovering/Resolving]
  - Nausea [Recovering/Resolving]
  - Pain in extremity [Unknown]
  - Product use issue [Unknown]

NARRATIVE: CASE EVENT DATE: 20250601
